FAERS Safety Report 4485220-2 (Version None)
Quarter: 2004Q4

REPORT INFORMATION
  Report Type: 
  Country: None (occurrence: None)
  Receive Date: 20041026
  Receipt Date: 20040707
  Transmission Date: 20050328
  Serious: No
  Sender: FDA-Public Use
  Company Number: US-BRISTOL-MYERS SQUIBB COMPANY-12633939

PATIENT
  Age: 58 Year
  Sex: Male
  Weight: 106 kg

DRUGS (10)
  1. GLUCOPHAGE XR [Suspect]
     Indication: DIABETES MELLITUS
     Route: 048
     Dates: start: 20040301
  2. VIAGRA [Suspect]
  3. AMAREL [Concomitant]
  4. AVAPRO [Concomitant]
  5. ASPIRIN [Concomitant]
  6. VITAMIN E [Concomitant]
  7. MULTI-VITAMIN [Concomitant]
  8. GARLIC [Concomitant]
  9. ACTOSE [Concomitant]
  10. PROTONIX [Concomitant]

REACTIONS (1)
  - ERECTILE DYSFUNCTION [None]
